FAERS Safety Report 19227485 (Version 1)
Quarter: 2021Q2

REPORT INFORMATION
  Report Type: Spontaneous
  Country: US (occurrence: US)
  Receive Date: 20210506
  Receipt Date: 20210506
  Transmission Date: 20210717
  Serious: No
  Sender: FDA-Public Use
  Company Number: US-ROCHE-2694808

PATIENT
  Age: 72 Year
  Sex: Female
  Weight: 88.7 kg

DRUGS (1)
  1. ESBRIET [Suspect]
     Active Substance: PIRFENIDONE
     Indication: IDIOPATHIC PULMONARY FIBROSIS
     Dosage: 801 MG THREE TIMES DAILY ;ONGOING: UNKNOWN
     Route: 048

REACTIONS (2)
  - Feeding disorder [Not Recovered/Not Resolved]
  - Confusional state [Unknown]
